FAERS Safety Report 20946688 (Version 1)
Quarter: 2022Q2

REPORT INFORMATION
  Report Type: Spontaneous
  Country: CZ (occurrence: CZ)
  Receive Date: 20220610
  Receipt Date: 20220610
  Transmission Date: 20220721
  Serious: Yes (Hospitalization, Other)
  Sender: FDA-Public Use
  Company Number: CZ-FreseniusKabi-FK202207837

PATIENT
  Age: 25 Year
  Sex: Male

DRUGS (16)
  1. AMIKACIN [Suspect]
     Active Substance: AMIKACIN
     Indication: Staphylococcus test positive
     Route: 042
  2. AMIKACIN [Suspect]
     Active Substance: AMIKACIN
     Indication: Enterococcal infection
  3. AMIKACIN [Suspect]
     Active Substance: AMIKACIN
     Indication: Antibiotic therapy
  4. LINEZOLID [Suspect]
     Active Substance: LINEZOLID
     Indication: Staphylococcus test positive
     Route: 042
  5. LINEZOLID [Suspect]
     Active Substance: LINEZOLID
     Indication: Enterococcal infection
  6. LINEZOLID [Suspect]
     Active Substance: LINEZOLID
     Indication: Antibiotic therapy
  7. MEROPENEM [Suspect]
     Active Substance: MEROPENEM
     Indication: Staphylococcus test positive
     Dosage: WITH TERAPEUTIC EFFECT
     Route: 042
     Dates: start: 202108
  8. MEROPENEM [Suspect]
     Active Substance: MEROPENEM
     Indication: Antibiotic therapy
  9. VANCOMYCIN [Suspect]
     Active Substance: VANCOMYCIN
     Indication: Staphylococcus test positive
     Dosage: WITH TERAPEUTIC EFFECT
     Route: 042
     Dates: start: 202108
  10. VANCOMYCIN [Suspect]
     Active Substance: VANCOMYCIN
     Indication: Antibiotic therapy
  11. AVIBACTAM SODIUM\CEFTAZIDIME [Suspect]
     Active Substance: AVIBACTAM SODIUM\CEFTAZIDIME
     Indication: Staphylococcus test positive
     Route: 042
  12. AVIBACTAM SODIUM\CEFTAZIDIME [Suspect]
     Active Substance: AVIBACTAM SODIUM\CEFTAZIDIME
     Indication: Enterococcal infection
  13. AVIBACTAM SODIUM\CEFTAZIDIME [Suspect]
     Active Substance: AVIBACTAM SODIUM\CEFTAZIDIME
     Indication: Antibiotic therapy
  14. NOREPINEPHRINE [Concomitant]
     Active Substance: NOREPINEPHRINE
     Indication: Sepsis
     Route: 065
  15. ANIDULAFUNGIN [Concomitant]
     Active Substance: ANIDULAFUNGIN
     Indication: Pulmonary oedema
     Route: 042
  16. ANIDULAFUNGIN [Concomitant]
     Active Substance: ANIDULAFUNGIN
     Dosage: 200 MG LOADING DOSE
     Route: 042

REACTIONS (1)
  - Mucormycosis [Recovering/Resolving]
